FAERS Safety Report 14110005 (Version 1)
Quarter: 2017Q4

REPORT INFORMATION
  Report Type: Spontaneous
  Country: US (occurrence: US)
  Receive Date: 20171020
  Receipt Date: 20171020
  Transmission Date: 20180321
  Serious: No
  Sender: FDA-Public Use
  Company Number: US-TEVA-726504ACC

PATIENT
  Sex: Female
  Weight: 72.64 kg

DRUGS (1)
  1. TRI-SPRINTEC [Suspect]
     Active Substance: ETHINYL ESTRADIOL\NORGESTIMATE
     Indication: ORAL CONTRACEPTION
     Dates: end: 201608

REACTIONS (9)
  - Weight decreased [Unknown]
  - Blood oestrogen decreased [Unknown]
  - Blood testosterone increased [Unknown]
  - Thyroid disorder [Unknown]
  - Feeling hot [Unknown]
  - Hair growth abnormal [Unknown]
  - Acne [Unknown]
  - Hypertrichosis [Unknown]
  - Alopecia [Unknown]
